FAERS Safety Report 23418717 (Version 1)
Quarter: 2024Q1

REPORT INFORMATION
  Report Type: Spontaneous
  Country: US (occurrence: None)
  Receive Date: 20240118
  Receipt Date: 20240118
  Transmission Date: 20240410
  Serious: Yes (Hospitalization)
  Sender: FDA-Public Use
  Company Number: None

PATIENT
  Sex: Female

DRUGS (2)
  1. PULMOZYME [Suspect]
     Active Substance: DORNASE ALFA
     Indication: Bronchiectasis
     Dosage: 1MG/ML DAILY INHALATION
     Route: 055
     Dates: start: 202309
  2. TOBRAMYCIN MDV (2ML/ML) [Concomitant]

REACTIONS (1)
  - Hospitalisation [None]
